FAERS Safety Report 11472833 (Version 2)
Quarter: 2015Q4

REPORT INFORMATION
  Report Type: Report from Study
  Country: TR (occurrence: TR)
  Receive Date: 20150908
  Receipt Date: 20151005
  Transmission Date: 20160304
  Serious: Yes (Death, Disabling)
  Sender: FDA-Public Use
  Company Number: TR-ROCHE-1630326

PATIENT
  Age: 66 Year
  Sex: Male

DRUGS (2)
  1. COBIMETINIB [Suspect]
     Active Substance: COBIMETINIB
     Indication: MALIGNANT MELANOMA
     Route: 065
     Dates: start: 20150715, end: 20150806
  2. VEMURAFENIB [Suspect]
     Active Substance: VEMURAFENIB
     Indication: MALIGNANT MELANOMA
     Route: 065
     Dates: start: 20150715, end: 20150806

REACTIONS (3)
  - Hyponatraemia [Fatal]
  - Spinal fracture [Recovered/Resolved with Sequelae]
  - Acute kidney injury [Fatal]

NARRATIVE: CASE EVENT DATE: 20150720
